FAERS Safety Report 6081033-9 (Version None)
Quarter: 2009Q1

REPORT INFORMATION
  Report Type: 
  Country: None (occurrence: None)
  Receive Date: 20090121
  Receipt Date: 20080923
  Transmission Date: 20090719
  Serious: Yes (Other)
  Sender: FDA-Public Use
  Company Number: US-WYE-H06097608

PATIENT
  Age: 71 Year
  Sex: Female
  Weight: 63.11 kg

DRUGS (10)
  1. PREMPRO [Suspect]
     Indication: MENOPAUSAL SYMPTOMS
     Dosage: 0.3MG/1.5MG DAILY, ORAL
     Route: 048
     Dates: start: 20030101, end: 20080101
  2. PREMARIN [Suspect]
     Indication: MENOPAUSAL SYMPTOMS
     Dosage: 0.625MG: FREQUENCY UNKNOWN, ORAL
     Route: 048
     Dates: start: 19950101
  3. LORAZEPAM [Concomitant]
  4. LEVOXL (LEVOTHYROXINE SODIUM) [Concomitant]
  5. HUMULIN (INSULIN HUMAN) [Concomitant]
  6. IBUPROFEN [Concomitant]
  7. VITAMIN B12 [Concomitant]
  8. GINKGO BILOBA (GINKGO BILOBA) [Concomitant]
  9. EVENING PRIMROSE (EVENING PRIMROSE OIL) [Concomitant]
  10. MULTIVITAMIN AND MINERAL SUPPLEMENT (MINERALS NOS/VITAMINS NOS) [Concomitant]

REACTIONS (1)
  - BREAST CANCER [None]
